FAERS Safety Report 10402059 (Version 1)
Quarter: 2014Q3

REPORT INFORMATION
  Report Type: Spontaneous
  Country: FR (occurrence: FR)
  Receive Date: 20140822
  Receipt Date: 20140822
  Transmission Date: 20150326
  Serious: Yes (Hospitalization)
  Sender: FDA-Public Use
  Company Number: FR-ELI_LILLY_AND_COMPANY-FR201408003300

PATIENT
  Age: 59 Year
  Sex: Male

DRUGS (6)
  1. TARCEVA [Concomitant]
     Active Substance: ERLOTINIB HYDROCHLORIDE
     Indication: LUNG NEOPLASM MALIGNANT
     Dosage: 150 MG, QD
     Route: 048
     Dates: start: 201208, end: 20140524
  2. METHYLPREDISOLONE [Concomitant]
     Active Substance: METHYLPREDNISOLONE
     Indication: PREMEDICATION
     Dosage: 60 MG, UNKNOWN
     Route: 065
  3. PREVISCAN                          /00789001/ [Concomitant]
     Active Substance: FLUINDIONE
     Dosage: UNK, UNKNOWN
     Route: 065
  4. FOLIC ACID. [Concomitant]
     Active Substance: FOLIC ACID
     Dosage: 0.4 MG, QD
     Route: 065
  5. ONDANSETRON [Concomitant]
     Active Substance: ONDANSETRON
     Indication: PREMEDICATION
     Dosage: 8 MG, UNKNOWN
     Route: 065
  6. ALIMTA [Suspect]
     Active Substance: PEMETREXED DISODIUM
     Indication: LUNG NEOPLASM MALIGNANT
     Dosage: 926 MG, UNKNOWN
     Route: 042
     Dates: start: 20140519

REACTIONS (3)
  - Eczema [Recovered/Resolved]
  - Hepatocellular injury [Recovering/Resolving]
  - Febrile bone marrow aplasia [Recovered/Resolved]

NARRATIVE: CASE EVENT DATE: 20140525
